FAERS Safety Report 6389804-6 (Version None)
Quarter: 2009Q4

REPORT INFORMATION
  Report Type: 
  Country: None (occurrence: None)
  Receive Date: 20091006
  Receipt Date: 20090925
  Transmission Date: 20100525
  Serious: Yes (Death)
  Sender: FDA-Public Use
  Company Number: JP-GENENTECH-290678

PATIENT
  Sex: Male

DRUGS (1)
  1. TRASTUZUMAB [Suspect]
     Indication: GASTRIC CANCER
     Dosage: 350 MG, Q3W
     Route: 041
     Dates: start: 20061211, end: 20090714

REACTIONS (4)
  - GASTROINTESTINAL PERFORATION [None]
  - HAEMATEMESIS [None]
  - PERITONITIS [None]
  - SHOCK [None]
